FAERS Safety Report 10343315 (Version 2)
Quarter: 2014Q4

REPORT INFORMATION
  Report Type: Report from Study
  Country: KR (occurrence: KR)
  Receive Date: 20140725
  Receipt Date: 20141021
  Transmission Date: 20150528
  Serious: No
  Sender: FDA-Public Use
  Company Number: PHHY2014KR091142

PATIENT
  Age: 64 Year
  Sex: Male

DRUGS (14)
  1. DIFLUCAN [Concomitant]
     Active Substance: FLUCONAZOLE
     Indication: PROPHYLAXIS
     Dosage: 100 MG, OT
     Route: 048
     Dates: start: 20140120, end: 20140127
  2. ACLOVA//ACICLOVIR [Concomitant]
     Indication: PROPHYLAXIS
     Dosage: 600 MG, OT
     Route: 048
     Dates: start: 20140120, end: 20140127
  3. CRAVIT [Concomitant]
     Active Substance: LEVOFLOXACIN
     Indication: PROPHYLAXIS
     Dosage: 500 MG, OT
     Route: 048
     Dates: start: 20140120, end: 20140127
  4. ANOSIN [Concomitant]
     Indication: CHEST DISCOMFORT
     Dosage: 90 MG, OT
     Route: 042
     Dates: start: 20140210, end: 20140210
  5. AMN107 [Suspect]
     Active Substance: NILOTINIB
     Dosage: 400 MG, PER DAY
     Route: 048
     Dates: start: 20140305, end: 20140325
  6. AMN107 [Suspect]
     Active Substance: NILOTINIB
     Dosage: 600 MG, PER DAY
     Route: 048
     Dates: start: 20140326
  7. NITROGLYCERIN. [Concomitant]
     Active Substance: NITROGLYCERIN
     Indication: CHEST DISCOMFORT
     Dosage: 0.6 MG, OT
     Route: 048
     Dates: start: 20140210, end: 20140210
  8. MAXNOPHEN [Concomitant]
     Indication: PROPHYLAXIS
     Dosage: 3 DF, OT
     Route: 048
     Dates: start: 20140120, end: 20140127
  9. BESTIDINE [Concomitant]
     Indication: NAUSEA
     Dosage: 2 DF, OT
     Route: 048
     Dates: start: 20140123, end: 20140218
  10. ACIDO FOLICO//FOLIC ACID [Concomitant]
     Indication: PROPHYLAXIS
     Dosage: 2 MG, OT
     Route: 048
     Dates: start: 20140120, end: 20140127
  11. TYLENOL ER [Concomitant]
     Active Substance: ACETAMINOPHEN
     Indication: HEADACHE
     Dosage: 2 DF, OT
     Route: 048
     Dates: start: 20140118, end: 20140119
  12. AMN107 [Suspect]
     Active Substance: NILOTINIB
     Indication: CHRONIC MYELOID LEUKAEMIA
     Dosage: 600 MG, PER DAY
     Route: 048
     Dates: start: 20140117, end: 20140218
  13. SEPTRIN [Concomitant]
     Active Substance: SULFAMETHOXAZOLE\TRIMETHOPRIM
     Indication: PROPHYLAXIS
     Dosage: 2 DF, OT
     Route: 048
     Dates: start: 20140120, end: 20140127
  14. URSA [Concomitant]
     Indication: PROPHYLAXIS
     Dosage: 100 MG, OT
     Route: 048
     Dates: start: 20140210, end: 20140210

REACTIONS (2)
  - Dyspnoea [Recovered/Resolved]
  - Abdominal distension [Recovered/Resolved]

NARRATIVE: CASE EVENT DATE: 20140409
